FAERS Safety Report 6133461-0 (Version None)
Quarter: 2009Q1

REPORT INFORMATION
  Report Type: 
  Country: None (occurrence: None)
  Receive Date: 20090326
  Receipt Date: 20090326
  Transmission Date: 20090719
  Serious: Yes (Hospitalization)
  Sender: FDA-Public Use
  Company Number: PHHO2001CH04088

PATIENT
  Sex: Female
  Weight: 73.2 kg

DRUGS (4)
  1. CGS 20267 T30748+ [Suspect]
     Indication: BREAST CANCER
     Dosage: 2.5 MG, QD
     Route: 048
     Dates: start: 20001101
  2. TEGRETOL [Concomitant]
     Indication: PAIN
  3. SEROPRAM [Concomitant]
  4. TOLVON [Concomitant]

REACTIONS (6)
  - BRAIN CONTUSION [None]
  - DIZZINESS [None]
  - FALL [None]
  - LOSS OF CONSCIOUSNESS [None]
  - OSTEOPOROSIS [None]
  - SKULL FRACTURE [None]
